FAERS Safety Report 8529358-9 (Version None)
Quarter: 2012Q3

REPORT INFORMATION
  Report Type: 
  Country: None (occurrence: None)
  Receive Date: 20120723
  Receipt Date: 20120712
  Transmission Date: 20120928
  Serious: Yes (Death, Hospitalization, Other)
  Sender: FDA-Public Use
  Company Number: DE-009507513-2012SP006053

PATIENT

DRUGS (6)
  1. IMBUN (IBUPROFEN) [Concomitant]
     Indication: PAIN
     Dosage: 500 MG, QID
     Route: 048
  2. TORSEMIDE [Concomitant]
     Indication: HYPERTONIA
     Dosage: 5 MG, QD
     Route: 048
     Dates: start: 20120112
  3. PANTOPRAZOLE [Concomitant]
     Indication: PROPHYLAXIS
     Dosage: 40 MG, QD
     Route: 048
  4. AMLODIPINE [Concomitant]
     Indication: HYPERTONIA
     Dosage: 5 MG, QD
     Route: 048
  5. ENOXAPARIN SODIUM [Concomitant]
     Indication: THROMBOSIS PROPHYLAXIS
     Dosage: 40 MG, QD
     Route: 058
  6. SUGAMMADEX SODIUM [Suspect]
     Indication: NEUROMUSCULAR BLOCKADE REVERSAL
     Dosage: 3.2 ML, ONCE
     Route: 042
     Dates: start: 20120112

REACTIONS (1)
  - SUBCUTANEOUS HAEMATOMA [None]
